FAERS Safety Report 17705427 (Version 1)
Quarter: 2020Q2

REPORT INFORMATION
  Report Type: Spontaneous
  Country: US (occurrence: US)
  Receive Date: 20200421
  Receipt Date: 20200421
  Transmission Date: 20200714
  Serious: No
  Sender: FDA-Public Use
  Company Number: None

PATIENT
  Age: 50 Year
  Sex: Female

DRUGS (1)
  1. ACTHAR [Suspect]
     Active Substance: CORTICOTROPIN
     Route: 030
     Dates: start: 201911

REACTIONS (2)
  - Therapy interrupted [None]
  - Cardiac disorder [None]

NARRATIVE: CASE EVENT DATE: 20200421
